FAERS Safety Report 22931033 (Version 4)
Quarter: 2023Q4

REPORT INFORMATION
  Report Type: Spontaneous
  Country: BR (occurrence: BR)
  Receive Date: 20230911
  Receipt Date: 20231013
  Transmission Date: 20240109
  Serious: Yes (Hospitalization, Other)
  Sender: FDA-Public Use
  Company Number: BR-SA-SAC20230908001302

PATIENT
  Age: 6 Year
  Sex: Female
  Weight: 30 kg

DRUGS (6)
  1. SABRIL [Suspect]
     Active Substance: VIGABATRIN
     Indication: Infantile spasms
     Dosage: 2 G, BID
     Route: 048
  2. CLOBAZAM [Concomitant]
     Active Substance: CLOBAZAM
     Indication: Epilepsy
     Dosage: 25 MG , QD; GIVEN WITH SABRIL IN 1 APPLICATION
     Route: 065
     Dates: start: 2018
  3. VALPROATE SODIUM [Concomitant]
     Active Substance: VALPROATE SODIUM
     Indication: Epilepsy
     Dosage: 22 ML , QD
     Route: 065
     Dates: start: 2018
  4. TOPIRAMATE [Concomitant]
     Active Substance: TOPIRAMATE
     Indication: Epilepsy
     Dosage: 50 MG, Q8H
     Route: 065
     Dates: start: 2018
  5. BACLOFEN [Concomitant]
     Active Substance: BACLOFEN
     Indication: Muscle disorder
     Dosage: 10 MG, Q12H
     Route: 065
     Dates: start: 2018
  6. CANNABIDIOL [Concomitant]
     Active Substance: CANNABIDIOL
     Indication: Product used for unknown indication
     Route: 065

REACTIONS (9)
  - Neurological examination abnormal [Unknown]
  - Respiratory disorder [Unknown]
  - Pyrexia [Unknown]
  - Infection [Unknown]
  - Muscle spasms [Unknown]
  - Seizure [Unknown]
  - Somnolence [Recovering/Resolving]
  - Poor quality product administered [Unknown]
  - Incorrect route of product administration [Unknown]

NARRATIVE: CASE EVENT DATE: 20230401
